FAERS Safety Report 6210401-7 (Version None)
Quarter: 2009Q2

REPORT INFORMATION
  Report Type: 
  Country: None (occurrence: None)
  Receive Date: 20090529
  Receipt Date: 20090529
  Transmission Date: 20091009
  Serious: No
  Sender: FDA-Public Use
  Company Number: None

PATIENT
  Sex: Male

DRUGS (1)
  1. ZANTAC [Suspect]
     Dosage: 50MG Q8HOURS INTRAVENOUS
     Route: 042
     Dates: start: 20090426

REACTIONS (1)
  - NO ADVERSE EVENT [None]
